FAERS Safety Report 8387368-9 (Version None)
Quarter: 2012Q2

REPORT INFORMATION
  Report Type: 
  Country: None (occurrence: None)
  Receive Date: 20120525
  Receipt Date: 20120521
  Transmission Date: 20120825
  Serious: Yes (Other)
  Sender: FDA-Public Use
  Company Number: BR-ROXANE LABORATORIES, INC.-2012-RO-01285RO

PATIENT
  Age: 48 Year
  Sex: Female

DRUGS (5)
  1. VALPROIC ACID [Suspect]
     Indication: BIPOLAR I DISORDER
  2. AZATHIOPRINE [Suspect]
     Indication: PEMPHIGUS
  3. RISPERIDONE [Suspect]
     Dosage: 4 MG
  4. RISPERIDONE [Suspect]
     Indication: MANIA
     Dosage: 2 MG
  5. BIPERIDEN HYDROCHLORIDE TAB [Suspect]
     Indication: PARKINSONISM

REACTIONS (2)
  - PARKINSONISM [None]
  - CONDITION AGGRAVATED [None]
